FAERS Safety Report 25663817 (Version 1)
Quarter: 2025Q3

REPORT INFORMATION
  Report Type: Spontaneous
  Country: US (occurrence: US)
  Receive Date: 20250811
  Receipt Date: 20250811
  Transmission Date: 20251020
  Serious: Yes (Other)
  Sender: ACCORD
  Company Number: US-MLMSERVICE-20250723-PI588745-00226-1

PATIENT
  Sex: Female

DRUGS (8)
  1. AMITRIPTYLINE [Suspect]
     Active Substance: AMITRIPTYLINE
     Indication: Product used for unknown indication
     Dosage: PTA 250 MG DOSE AT BEDTIME
  2. MIRTAZAPINE [Suspect]
     Active Substance: MIRTAZAPINE
     Indication: Sleep disorder
     Dosage: AT BEDTIME FOR ONE WEEK WITH A PLAN TO TITRATE UP TO 7.5 MG AFTERWARDS
  3. MIRTAZAPINE [Suspect]
     Active Substance: MIRTAZAPINE
     Indication: Sleep disorder
     Dosage: INCREASED TO 15 MG ORAL AT BEDTIME
     Route: 048
     Dates: start: 2024, end: 2024
  4. AMITRIPTYLINE [Suspect]
     Active Substance: AMITRIPTYLINE
     Indication: Product used for unknown indication
     Dosage: TAPERED OFF TO 50 MG AT BEDTIME
  5. AMITRIPTYLINE [Suspect]
     Active Substance: AMITRIPTYLINE
     Indication: Product used for unknown indication
     Dosage: DECREASED TO 25 MG AT BEDTIME
     Dates: start: 2024
  6. MIRTAZAPINE [Suspect]
     Active Substance: MIRTAZAPINE
     Indication: Insomnia
     Route: 048
     Dates: start: 2024, end: 2024
  7. MIRTAZAPINE [Suspect]
     Active Substance: MIRTAZAPINE
     Indication: Sleep disorder
     Route: 048
     Dates: start: 2024, end: 2024
  8. MIRTAZAPINE [Suspect]
     Active Substance: MIRTAZAPINE
     Indication: Sleep disorder
     Dosage: AT BEDTIME FOR ONE WEEK WITH A PLAN TO TITRATE UP TO 7.5 MG AFTERWARDS

REACTIONS (3)
  - Tardive dyskinesia [Unknown]
  - Oral pain [Unknown]
  - Pain in jaw [Unknown]

NARRATIVE: CASE EVENT DATE: 20240101
